FAERS Safety Report 8221244-7 (Version None)
Quarter: 2012Q1

REPORT INFORMATION
  Report Type: 
  Country: None (occurrence: None)
  Receive Date: 20120320
  Receipt Date: 20120312
  Transmission Date: 20120608
  Serious: Yes (Other)
  Sender: FDA-Public Use
  Company Number: PHHY2012JP018547

PATIENT
  Age: 8 Month
  Sex: Male

DRUGS (6)
  1. TEGRETOL [Suspect]
     Dosage: 20 MG/KG, UNK
     Dates: start: 20120224
  2. TEGRETOL [Suspect]
     Dosage: 15 MG/KG, UNK
     Dates: start: 20120226
  3. MIDAZOLAM [Concomitant]
     Dates: start: 20120201
  4. TEGRETOL [Suspect]
     Dosage: 15 MG/KG, UNK
     Route: 048
  5. DEPAKENE [Concomitant]
     Dosage: 120 MG, UNK
     Route: 048
  6. TEGRETOL [Suspect]
     Indication: EPILEPSY
     Dosage: 5 MG/KG, UNK
     Route: 048
     Dates: start: 20120214

REACTIONS (3)
  - VOMITING [None]
  - SOMNOLENCE [None]
  - ANTICONVULSANT DRUG LEVEL DECREASED [None]
